FAERS Safety Report 12071967 (Version 4)
Quarter: 2016Q1

REPORT INFORMATION
  Report Type: Spontaneous
  Country: JP (occurrence: JP)
  Receive Date: 20160212
  Receipt Date: 20160317
  Transmission Date: 20160526
  Serious: Yes (Other)
  Sender: FDA-Public Use
  Company Number: JP-009507513-1602JPN004526

PATIENT
  Age: 43 Year
  Sex: Female
  Weight: 46 kg

DRUGS (2)
  1. BELSOMRA [Suspect]
     Active Substance: SUVOREXANT
     Indication: INSOMNIA
     Dosage: 20MG, ONCE
     Route: 048
     Dates: start: 20160115, end: 20160115
  2. BELSOMRA [Suspect]
     Active Substance: SUVOREXANT
     Dosage: 20MG, ONCE A DAY
     Route: 048
     Dates: start: 20150904, end: 20160105

REACTIONS (4)
  - Sedation [Recovered/Resolved]
  - Bradycardia [Recovered/Resolved]
  - Altered state of consciousness [Recovered/Resolved]
  - Chest discomfort [Recovered/Resolved]

NARRATIVE: CASE EVENT DATE: 20160115
